FAERS Safety Report 9323945 (Version 1)
Quarter: 2013Q2

REPORT INFORMATION
  Report Type: Spontaneous
  Country: CH (occurrence: CH)
  Receive Date: 20130603
  Receipt Date: 20130603
  Transmission Date: 20140414
  Serious: Yes (Other)
  Sender: FDA-Public Use
  Company Number: CH-PFIZER INC-2013163725

PATIENT
  Age: 33 Year
  Sex: Female
  Weight: 63 kg

DRUGS (3)
  1. SALAZOPYRIN [Suspect]
     Dosage: 1000 MG, 2X/DAY
     Route: 048
     Dates: start: 20130217
  2. SALAZOPYRIN [Suspect]
     Dosage: 500 MG, 2X/DAY
     Route: 048
  3. IMPLANON [Concomitant]
     Dosage: UNK
     Route: 058
     Dates: start: 2006

REACTIONS (2)
  - Fatigue [Not Recovered/Not Resolved]
  - Fatigue [Not Recovered/Not Resolved]
